FAERS Safety Report 20164333 (Version 2)
Quarter: 2022Q1

REPORT INFORMATION
  Report Type: Report from Study
  Country: IT (occurrence: IT)
  Receive Date: 20211209
  Receipt Date: 20220111
  Transmission Date: 20220423
  Serious: Yes (Other)
  Sender: FDA-Public Use
  Company Number: None

PATIENT
  Age: 46 Year
  Weight: 62 kg

DRUGS (3)
  1. FLUOROURACIL [Suspect]
     Active Substance: FLUOROURACIL
     Indication: Breast cancer
     Dosage: 800 MG ,FLUOROURACIL TEVA 1 G / 20 ML SOLUTION FOR INFUSION
     Dates: start: 20210920
  2. METHOTREXATE (METHOTREXATE SODIUM) [Suspect]
     Active Substance: METHOTREXATE SODIUM
     Indication: Breast cancer
     Dosage: 55 MG, METHOTREXATE TEVA 100 MG / ML SOLUTION FOR INJECTION
     Dates: start: 20210920
  3. CYCLOPHOSPHAMIDE [Concomitant]
     Active Substance: CYCLOPHOSPHAMIDE
     Indication: Breast cancer
     Dosage: 150 MG ,ENDOXAN BAXTER 50 MG COATED TABLETS
     Dates: start: 20210920, end: 20211115

REACTIONS (1)
  - Transaminases increased [Not Recovered/Not Resolved]

NARRATIVE: CASE EVENT DATE: 20211115
